FAERS Safety Report 4994148-0 (Version None)
Quarter: 2006Q1

REPORT INFORMATION
  Report Type: 
  Country: None (occurrence: None)
  Receive Date: 20060313
  Receipt Date: 20050315
  Transmission Date: 20060701
  Serious: Yes (Other)
  Sender: FDA-Public Use
  Company Number: PHEH2005US03204

PATIENT
  Sex: Male

DRUGS (2)
  1. TRILEPTAL [Suspect]
     Indication: BIPOLAR I DISORDER
     Dosage: 900 MG QD
     Dates: start: 20041101
  2. LITHIUM CARBONATE [Concomitant]

REACTIONS (3)
  - CONVULSION [None]
  - FATIGUE [None]
  - INSOMNIA [None]
